FAERS Safety Report 20687596 (Version 8)
Quarter: 2022Q4

REPORT INFORMATION
  Report Type: Report from Study
  Country: IN (occurrence: IN)
  Receive Date: 20220408
  Receipt Date: 20221209
  Transmission Date: 20230112
  Serious: Yes (Hospitalization)
  Sender: FDA-Public Use
  Company Number: IN-002147023-NVSC2022IN023446

PATIENT
  Age: 48 Year
  Sex: Female

DRUGS (11)
  1. ERENUMAB [Suspect]
     Active Substance: ERENUMAB
     Indication: Migraine prophylaxis
     Dosage: 70 MG, QMO (FIRST DOSE)
     Route: 058
     Dates: start: 20211230
  2. ERENUMAB [Suspect]
     Active Substance: ERENUMAB
     Dosage: UNK (SECOND DOSE)
     Route: 065
     Dates: start: 20220128
  3. ERENUMAB [Suspect]
     Active Substance: ERENUMAB
     Dosage: UNK (THIRD DOSE)
     Route: 065
     Dates: start: 20220302
  4. ERENUMAB [Suspect]
     Active Substance: ERENUMAB
     Dosage: UNK (FOURTH DOSE)
     Route: 065
     Dates: start: 20220401
  5. ERENUMAB [Suspect]
     Active Substance: ERENUMAB
     Dosage: UNK (FIFTH DOSE)
     Route: 065
     Dates: start: 20220429
  6. ERENUMAB [Suspect]
     Active Substance: ERENUMAB
     Dosage: UNK (SIXTH DOSE)
     Route: 065
     Dates: start: 20220603
  7. ERENUMAB [Suspect]
     Active Substance: ERENUMAB
     Dosage: UNK (SEVENTH DOSE)
     Route: 065
     Dates: start: 20220703
  8. ERENUMAB [Suspect]
     Active Substance: ERENUMAB
     Dosage: UNK (EIGHTH DOSE)
     Route: 065
     Dates: start: 20220823
  9. ERENUMAB [Suspect]
     Active Substance: ERENUMAB
     Dosage: UNK (NINTH DOSE)
     Route: 065
     Dates: start: 20220927
  10. ERENUMAB [Suspect]
     Active Substance: ERENUMAB
     Dosage: UNK (TENTH DOSE)
     Route: 065
     Dates: start: 20221031
  11. ERENUMAB [Suspect]
     Active Substance: ERENUMAB
     Dosage: UNK(ELEVENTH DOSE)
     Route: 065
     Dates: start: 20221130

REACTIONS (7)
  - Nausea [Unknown]
  - Sinus disorder [Unknown]
  - Malaise [Unknown]
  - Drug ineffective [Unknown]
  - Ear pain [Unknown]
  - Headache [Unknown]
  - Migraine [Unknown]

NARRATIVE: CASE EVENT DATE: 20211230
